FAERS Safety Report 6426808-9 (Version None)
Quarter: 2009Q4

REPORT INFORMATION
  Report Type: 
  Country: None (occurrence: None)
  Receive Date: 20091104
  Receipt Date: 20091026
  Transmission Date: 20100525
  Serious: Yes (Hospitalization)
  Sender: FDA-Public Use
  Company Number: US-JNJFOC-20091008385

PATIENT
  Age: 79 Year
  Sex: Male

DRUGS (1)
  1. ST JOSEPH ENTERIC COATED [Suspect]
     Indication: ARTHRALGIA
     Route: 048

REACTIONS (4)
  - HAEMOPTYSIS [None]
  - INAPPROPRIATE SCHEDULE OF DRUG ADMINISTRATION [None]
  - MALAISE [None]
  - PRODUCT CONTAMINATION PHYSICAL [None]
